FAERS Safety Report 6337858-5 (Version None)
Quarter: 2009Q3

REPORT INFORMATION
  Report Type: 
  Country: None (occurrence: None)
  Receive Date: 20090902
  Receipt Date: 20090826
  Transmission Date: 20100115
  Serious: Yes (Hospitalization)
  Sender: FDA-Public Use
  Company Number: B0590198A

PATIENT
  Sex: Female

DRUGS (3)
  1. AUGMENTIN '125' [Suspect]
     Indication: DRUG USE FOR UNKNOWN INDICATION
     Dosage: 500MG THREE TIMES PER DAY
     Route: 048
     Dates: start: 20090722, end: 20090730
  2. VISIPAQUE [Suspect]
     Route: 042
     Dates: start: 20090730, end: 20090730
  3. BACTRIM DS [Suspect]
     Indication: DRUG USE FOR UNKNOWN INDICATION
     Dosage: 800MG TWICE PER DAY
     Route: 048
     Dates: start: 20090722, end: 20090730

REACTIONS (2)
  - HYPERTHERMIA [None]
  - PRURIGO [None]
